FAERS Safety Report 13196437 (Version 2)
Quarter: 2018Q2

REPORT INFORMATION
  Report Type: Report from Study
  Country: US (occurrence: US)
  Receive Date: 20170208
  Receipt Date: 20180601
  Transmission Date: 20180711
  Serious: Yes (Death)
  Sender: FDA-Public Use
  Company Number: PHEH2017US003770

PATIENT
  Age: 78 Year
  Sex: Male

DRUGS (1)
  1. PROMACTA [Suspect]
     Active Substance: ELTROMBOPAG OLAMINE
     Indication: BLADDER CANCER
     Route: 065

REACTIONS (4)
  - Malaise [Unknown]
  - Death [Fatal]
  - Product use in unapproved indication [Unknown]
  - Bone cancer [Unknown]

NARRATIVE: CASE EVENT DATE: 20180514
